FAERS Safety Report 7381415-9 (Version None)
Quarter: 2011Q1

REPORT INFORMATION
  Report Type: 
  Country: None (occurrence: None)
  Receive Date: 20110324
  Receipt Date: 20110324
  Transmission Date: 20110831
  Serious: Yes (Hospitalization)
  Sender: FDA-Public Use
  Company Number: None

PATIENT
  Age: 58 Year
  Sex: Female
  Weight: 68.9 kg

DRUGS (2)
  1. WARFARIN SODIUM [Suspect]
     Dosage: WARFARIN 5 MG ORAL
     Route: 048
     Dates: start: 20110307
  2. DULOXETIME HYDROCHLORIDE [Suspect]
     Dosage: DULOXETINE 120 MG ORAL DULOXETINE USE HAS BEEN YEARS
     Route: 048

REACTIONS (3)
  - DRUG INTERACTION [None]
  - INTERNATIONAL NORMALISED RATIO INCREASED [None]
  - HAEMARTHROSIS [None]
